FAERS Safety Report 16843451 (Version 4)
Quarter: 2023Q4

REPORT INFORMATION
  Report Type: Spontaneous
  Country: US (occurrence: US)
  Receive Date: 20190924
  Receipt Date: 20231221
  Transmission Date: 20240110
  Serious: Yes (Other)
  Sender: FDA-Public Use
  Company Number: US-GILEAD-2019-0429705

PATIENT
  Age: 62 Year
  Sex: Male
  Weight: 133.79 kg

DRUGS (40)
  1. VIREAD [Suspect]
     Active Substance: TENOFOVIR DISOPROXIL FUMARATE
     Indication: HIV infection
     Dosage: UNK
     Route: 048
     Dates: start: 2002, end: 2005
  2. VIREAD [Suspect]
     Active Substance: TENOFOVIR DISOPROXIL FUMARATE
     Dosage: UNK
     Route: 048
     Dates: start: 2002, end: 201709
  3. TRUVADA [Suspect]
     Active Substance: EMTRICITABINE\TENOFOVIR DISOPROXIL FUMARATE
     Indication: HIV infection
     Dosage: UNK
     Route: 048
     Dates: start: 2005, end: 20140714
  4. BIKTARVY [Concomitant]
     Active Substance: BICTEGRAVIR SODIUM\EMTRICITABINE\TENOFOVIR ALAFENAMIDE FUMARATE
  5. EPZICOM [Concomitant]
     Active Substance: ABACAVIR SULFATE\LAMIVUDINE
  6. KALETRA [Concomitant]
     Active Substance: LOPINAVIR\RITONAVIR
  7. ENTECAVIR [Concomitant]
     Active Substance: ENTECAVIR
  8. PREZISTA [Concomitant]
     Active Substance: DARUNAVIR ETHANOLATE
  9. REYATAZ [Concomitant]
     Active Substance: ATAZANAVIR SULFATE
  10. SUSTIVA [Concomitant]
     Active Substance: EFAVIRENZ
  11. ATORVASTATIN [Concomitant]
     Active Substance: ATORVASTATIN
  12. AZITHROMYCIN [Concomitant]
     Active Substance: AZITHROMYCIN
  13. CLARITHROMYCIN [Concomitant]
     Active Substance: CLARITHROMYCIN
  14. COUMADIN [Concomitant]
     Active Substance: WARFARIN SODIUM
  15. CRESTOR [Concomitant]
     Active Substance: ROSUVASTATIN CALCIUM
  16. DIPHENHYDRAMINE [Concomitant]
     Active Substance: DIPHENHYDRAMINE
  17. LORATADINE [Concomitant]
     Active Substance: LORATADINE
  18. ACETAMINOPHEN\HYDROCODONE [Concomitant]
     Active Substance: ACETAMINOPHEN\HYDROCODONE
  19. OMEPRAZOLE [Concomitant]
     Active Substance: OMEPRAZOLE
  20. PANTOPRAZOLE [Concomitant]
     Active Substance: PANTOPRAZOLE
  21. PHENTERMINE [Concomitant]
     Active Substance: PHENTERMINE
  22. ROSUVASTATIN [Concomitant]
     Active Substance: ROSUVASTATIN
  23. VALACYCLOVIR HYDROCHLORIDE [Concomitant]
     Active Substance: VALACYCLOVIR HYDROCHLORIDE
  24. WARFARIN [Concomitant]
     Active Substance: WARFARIN
  25. AMOXICILLIN [Concomitant]
     Active Substance: AMOXICILLIN
  26. CEFDINIR [Concomitant]
     Active Substance: CEFDINIR
  27. CEPHALEXIN [Concomitant]
     Active Substance: CEPHALEXIN
  28. CETIRIZINE HYDROCHLORIDE [Concomitant]
     Active Substance: CETIRIZINE HYDROCHLORIDE
  29. DEXTROAMPHETAMINE [Concomitant]
     Active Substance: DEXTROAMPHETAMINE
  30. GUAIFENESIN [Concomitant]
     Active Substance: GUAIFENESIN
  31. HAVRIX [Concomitant]
     Active Substance: HEPATITIS A VIRUS STRAIN HM175 ANTIGEN (FORMALDEHYDE INACTIVATED)
  32. LIPITOR [Concomitant]
     Active Substance: ATORVASTATIN CALCIUM
  33. CLARITIN [Concomitant]
     Active Substance: LORATADINE
  34. MODAFINIL [Concomitant]
     Active Substance: MODAFINIL
  35. NEXIUM [Concomitant]
     Active Substance: ESOMEPRAZOLE MAGNESIUM
  36. PRAVASTATIN [Concomitant]
     Active Substance: PRAVASTATIN
  37. PROVIGIL [Concomitant]
     Active Substance: MODAFINIL
  38. SIMVASTATIN [Concomitant]
     Active Substance: SIMVASTATIN
  39. SULFAMETHOXAZOLE\TRIMETHOPRIM [Concomitant]
     Active Substance: SULFAMETHOXAZOLE\TRIMETHOPRIM
  40. ANDRODERM [Concomitant]
     Active Substance: TESTOSTERONE

REACTIONS (14)
  - Osteoporosis [Not Recovered/Not Resolved]
  - Spinal compression fracture [Not Recovered/Not Resolved]
  - Fracture [Not Recovered/Not Resolved]
  - Kyphosis [Not Recovered/Not Resolved]
  - Loss of personal independence in daily activities [Not Recovered/Not Resolved]
  - Weight increased [Not Recovered/Not Resolved]
  - Quality of life decreased [Not Recovered/Not Resolved]
  - Decreased activity [Not Recovered/Not Resolved]
  - Pain [Not Recovered/Not Resolved]
  - Mobility decreased [Not Recovered/Not Resolved]
  - Emotional distress [Not Recovered/Not Resolved]
  - Anxiety [Not Recovered/Not Resolved]
  - Anhedonia [Not Recovered/Not Resolved]
  - Osteopenia [Not Recovered/Not Resolved]

NARRATIVE: CASE EVENT DATE: 20100513
